FAERS Safety Report 22716673 (Version 4)
Quarter: 2023Q4

REPORT INFORMATION
  Report Type: Spontaneous
  Country: CA (occurrence: CA)
  Receive Date: 20230718
  Receipt Date: 20231019
  Transmission Date: 20240110
  Serious: Yes (Other)
  Sender: FDA-Public Use
  Company Number: CA-PFIZER INC-PV202200116499

PATIENT
  Age: 47 Year
  Sex: Female
  Weight: 108 kg

DRUGS (1)
  1. ABRILADA [Suspect]
     Active Substance: ADALIMUMAB-AFZB
     Indication: Hidradenitis
     Dosage: 40 MG, WEEKLY FOR ONE YEAR RENEWAL
     Route: 058
     Dates: start: 20220707

REACTIONS (7)
  - Visual impairment [Unknown]
  - Vision blurred [Not Recovered/Not Resolved]
  - Therapeutic product effect decreased [Unknown]
  - Lymphadenopathy [Unknown]
  - Nodule [Unknown]
  - Hidradenitis [Unknown]
  - Disease progression [Unknown]
